FAERS Safety Report 9374673 (Version 1)
Quarter: 2013Q2

REPORT INFORMATION
  Report Type: Spontaneous
  Country: US (occurrence: US)
  Receive Date: 20130628
  Receipt Date: 20130628
  Transmission Date: 20140414
  Serious: Yes (Other)
  Sender: FDA-Public Use
  Company Number: CHPA2013US010240

PATIENT
  Age: 70 Year
  Sex: Male

DRUGS (5)
  1. AMIODARONE [Concomitant]
     Indication: ATRIAL FIBRILLATION
     Dosage: UNK, UNK
     Dates: end: 2013
  2. NEXIUM//ESOMEPRAZOLE MAGNESIUM [Concomitant]
     Indication: GASTROOESOPHAGEAL REFLUX DISEASE
     Dosage: UNK, UNK
  3. TOPROL XL [Concomitant]
     Indication: HYPERTENSION
     Dosage: UNK, UNK
  4. GAS-X CHEWABLE TABLETS CHERRY CREME [Suspect]
     Indication: FLATULENCE
     Dosage: 2 DF, BID
     Route: 048
     Dates: start: 20130623, end: 20130623
  5. GAS-X CHEWABLE TABLETS CHERRY CREME [Suspect]
     Indication: ABDOMINAL DISTENSION
     Dosage: UNK, UNK
     Route: 048

REACTIONS (4)
  - Extrasystoles [Unknown]
  - Heart rate irregular [Unknown]
  - Heart rate increased [Recovered/Resolved]
  - Palpitations [Recovered/Resolved]
